FAERS Safety Report 11162902 (Version 1)
Quarter: 2015Q2

REPORT INFORMATION
  Report Type: Spontaneous
  Country: US (occurrence: US)
  Receive Date: 20150604
  Receipt Date: 20150604
  Transmission Date: 20150821
  Serious: No
  Sender: FDA-Public Use
  Company Number: US-SA-2015SA016826

PATIENT
  Age: 66 Year
  Sex: Female

DRUGS (2)
  1. SOLOSTAR [Suspect]
     Active Substance: DEVICE
     Indication: TYPE 2 DIABETES MELLITUS
     Dates: start: 2014
  2. LANTUS SOLOSTAR [Suspect]
     Active Substance: INSULIN GLARGINE
     Indication: TYPE 2 DIABETES MELLITUS
     Dosage: DOSE: 48 U IN AM/44 UPM
     Route: 065
     Dates: start: 2014

REACTIONS (3)
  - Carpal tunnel syndrome [Unknown]
  - Drug administration error [Unknown]
  - Discomfort [Unknown]

NARRATIVE: CASE EVENT DATE: 2014
